FAERS Safety Report 6992639-4 (Version None)
Quarter: 2010Q3

REPORT INFORMATION
  Report Type: 
  Country: None (occurrence: None)
  Receive Date: 20100917
  Receipt Date: 20100907
  Transmission Date: 20110219
  Serious: Yes (Other)
  Sender: FDA-Public Use
  Company Number: DE-ROCHE-727409

PATIENT
  Sex: Female

DRUGS (7)
  1. BONIVA [Suspect]
     Indication: OSTEOPOROSIS
     Route: 042
     Dates: start: 20071107, end: 20100622
  2. METOPROLOL SUCCINATE [Concomitant]
     Route: 048
  3. DIGOXIN [Concomitant]
     Route: 048
  4. MARCUMAR [Concomitant]
     Dosage: IF REQUIRED
     Route: 048
  5. SORTIS [Concomitant]
     Route: 048
  6. NORMOC [Concomitant]
     Route: 048
  7. CALCIMAGON [Concomitant]
     Indication: OSTEOPOROSIS
     Route: 048

REACTIONS (3)
  - DRUG ADMINISTRATION ERROR [None]
  - FAT NECROSIS [None]
  - SOFT TISSUE INFECTION [None]
